FAERS Safety Report 6785750-4 (Version None)
Quarter: 2010Q2

REPORT INFORMATION
  Report Type: 
  Country: None (occurrence: None)
  Receive Date: 20100618
  Receipt Date: 20100609
  Transmission Date: 20101027
  Serious: Yes (Hospitalization)
  Sender: FDA-Public Use
  Company Number: 013718

PATIENT
  Age: 68 Year
  Sex: Male

DRUGS (3)
  1. ADRENALINE RENAUDIN (ADRENALINE) [Suspect]
     Dosage: (2 MG, Q1H, INFUSION INTRAVENOUS
     Route: 042
  2. NITROGLYCERIN [Suspect]
     Dosage: (INTRAVENOUS INFUSION)
     Route: 042
  3. ASPIRIN [Concomitant]

REACTIONS (4)
  - ARTERIOSPASM CORONARY [None]
  - BRONCHOSPASM [None]
  - CARDIAC ARREST [None]
  - CORONARY ARTERY STENOSIS [None]
